FAERS Safety Report 5709076-2 (Version None)
Quarter: 2008Q2

REPORT INFORMATION
  Report Type: 
  Country: None (occurrence: None)
  Receive Date: 20080418
  Receipt Date: 20080407
  Transmission Date: 20081010
  Serious: Yes (Other)
  Sender: FDA-Public Use
  Company Number: US-JNJFOC-20080402685

PATIENT
  Sex: Female
  Weight: 63.5 kg

DRUGS (10)
  1. DURAGESIC-100 [Suspect]
     Route: 062
  2. DURAGESIC-100 [Suspect]
     Indication: PAIN
     Route: 062
  3. FENTANYL TRANSDERMAL SYSTEM [Suspect]
     Indication: PAIN
     Route: 062
  4. FENTORA [Suspect]
     Indication: BREAKTHROUGH PAIN
     Route: 065
  5. XANAX [Concomitant]
     Indication: MUSCLE SPASMS
     Route: 048
  6. SINEMET [Concomitant]
     Indication: THYROID NEOPLASM
     Route: 048
  7. PROTONIX [Concomitant]
     Indication: DYSPHAGIA
     Dosage: IN THE MORNING
     Route: 048
  8. LASIX [Concomitant]
     Indication: SYSTEMIC LUPUS ERYTHEMATOSUS
     Route: 048
  9. LASIX [Concomitant]
     Indication: RENAL DISORDER
     Route: 048
  10. POTASSIUM CHLORIDE [Concomitant]
     Indication: BLOOD POTASSIUM DECREASED

REACTIONS (8)
  - DRUG INEFFECTIVE [None]
  - FATIGUE [None]
  - INCORRECT DRUG ADMINISTRATION DURATION [None]
  - MULTIPLE SCLEROSIS [None]
  - PAIN [None]
  - PARKINSON'S DISEASE [None]
  - THROMBOSIS [None]
  - WRONG TECHNIQUE IN DRUG USAGE PROCESS [None]
